FAERS Safety Report 16847820 (Version 1)
Quarter: 2019Q3

REPORT INFORMATION
  Report Type: Other
  Country: US (occurrence: US)
  Receive Date: 20190924
  Receipt Date: 20190924
  Transmission Date: 20191005
  Serious: No
  Sender: FDA-Public Use
  Company Number: US-ACORDA-ACO_160520_2019

PATIENT
  Sex: Male
  Weight: 69.39 kg

DRUGS (1)
  1. INBRIJA [Suspect]
     Active Substance: LEVODOPA
     Indication: PARKINSON^S DISEASE
     Dosage: 42 MILLIGRAM, 2 CAPSULES UP TO FIVE TIMES PER DAY AS NEEDED
     Dates: start: 20190808

REACTIONS (3)
  - Cough [Unknown]
  - Drug ineffective [Unknown]
  - Wrong technique in product usage process [Unknown]
